FAERS Safety Report 6941500-X (Version None)
Quarter: 2010Q3

REPORT INFORMATION
  Report Type: 
  Country: None (occurrence: None)
  Receive Date: 20100825
  Receipt Date: 20100818
  Transmission Date: 20110219
  Serious: Yes (Hospitalization)
  Sender: FDA-Public Use
  Company Number: PHHO2010IT12489

PATIENT
  Sex: Female
  Weight: 60.5 kg

DRUGS (2)
  1. CERTICAN [Suspect]
     Dosage: 1.5 + 1.25
     Dates: start: 20100806
  2. NEORAL [Suspect]
     Dosage: 50 UNK, BID
     Dates: start: 20100806

REACTIONS (1)
  - LYMPHOCELE [None]
